FAERS Safety Report 9099048 (Version 1)
Quarter: 2013Q1

REPORT INFORMATION
  Report Type: Spontaneous
  Country: US (occurrence: US)
  Receive Date: 20130214
  Receipt Date: 20130214
  Transmission Date: 20140127
  Serious: Yes (Other)
  Sender: FDA-Public Use
  Company Number: US-SANOFI-AVENTIS-2012SA054471

PATIENT
  Age: 79 Year
  Sex: Male

DRUGS (6)
  1. MULTAQ [Suspect]
     Indication: ATRIAL FIBRILLATION
     Route: 048
     Dates: start: 20120606, end: 201207
  2. MULTAQ [Suspect]
     Indication: ATRIAL FIBRILLATION
     Route: 048
     Dates: start: 201207, end: 201207
  3. MULTAQ [Suspect]
     Indication: ATRIAL FIBRILLATION
     Route: 048
     Dates: start: 201207
  4. DABIGATRAN ETEXILATE [Concomitant]
     Route: 065
     Dates: start: 20120606
  5. DABIGATRAN ETEXILATE [Concomitant]
  6. RABEPRAZOLE SODIUM [Concomitant]
     Indication: EMOTIONAL DISTRESS

REACTIONS (6)
  - Transient ischaemic attack [Recovered/Resolved]
  - Inappropriate schedule of drug administration [Recovered/Resolved]
  - Dementia Alzheimer^s type [Not Recovered/Not Resolved]
  - Insomnia [Not Recovered/Not Resolved]
  - Abnormal behaviour [Not Recovered/Not Resolved]
  - Nasopharyngitis [Unknown]
